FAERS Safety Report 11363696 (Version 2)
Quarter: 2015Q4

REPORT INFORMATION
  Report Type: Spontaneous
  Country: DE (occurrence: DE)
  Receive Date: 20150811
  Receipt Date: 20151213
  Transmission Date: 20160304
  Serious: Yes (Other)
  Sender: FDA-Public Use
  Company Number: DE-ROCHE-1620211

PATIENT
  Age: 53 Year
  Sex: Female

DRUGS (2)
  1. XOLAIR [Suspect]
     Active Substance: OMALIZUMAB
     Route: 058
     Dates: start: 20150707
  2. XOLAIR [Suspect]
     Active Substance: OMALIZUMAB
     Indication: URTICARIA CHRONIC
     Route: 058

REACTIONS (29)
  - Borrelia test positive [Unknown]
  - Arthralgia [Unknown]
  - Complement factor C4 increased [Unknown]
  - Serum ferritin increased [Unknown]
  - Dyspnoea [Recovered/Resolved]
  - Pruritus [Recovered/Resolved]
  - Blood fibrinogen increased [Not Recovered/Not Resolved]
  - Swollen tongue [Recovered/Resolved]
  - Angioedema [Unknown]
  - Osteoarthritis [Unknown]
  - Pain [Unknown]
  - Alanine aminotransferase decreased [Not Recovered/Not Resolved]
  - Beta globulin increased [Unknown]
  - Blood alkaline phosphatase increased [Not Recovered/Not Resolved]
  - Chlamydia test positive [Unknown]
  - Gamma-glutamyltransferase increased [Unknown]
  - Platelet count increased [Recovering/Resolving]
  - Myalgia [Unknown]
  - Paraesthesia [Unknown]
  - Blood immunoglobulin G increased [Unknown]
  - Mean cell volume increased [Unknown]
  - Swelling face [Recovered/Resolved]
  - Red blood cell sedimentation rate increased [Unknown]
  - Urticaria [Unknown]
  - Respiratory tract infection [Unknown]
  - Cervicobrachial syndrome [Unknown]
  - Infection [Unknown]
  - Blood calcium increased [Unknown]
  - Pain in extremity [Unknown]

NARRATIVE: CASE EVENT DATE: 20150712
